FAERS Safety Report 22216729 (Version 1)
Quarter: 2023Q2

REPORT INFORMATION
  Report Type: Report from Study
  Country: US (occurrence: US)
  Receive Date: 20230417
  Receipt Date: 20230417
  Transmission Date: 20230722
  Serious: No
  Sender: FDA-Public Use
  Company Number: US-PHARMING-PHAUS2023000249

PATIENT

DRUGS (1)
  1. RUCONEST [Suspect]
     Active Substance: HUMAN C1-ESTERASE INHIBITOR
     Indication: Hereditary angioedema
     Dosage: 4200 IU, PRN
     Route: 042
     Dates: start: 20201123

REACTIONS (4)
  - Endoscopy [Recovered/Resolved]
  - Product use in unapproved indication [Unknown]
  - Back pain [Unknown]
  - Sneezing [Unknown]

NARRATIVE: CASE EVENT DATE: 20230228
